FAERS Safety Report 8302338-4 (Version None)
Quarter: 2012Q2

REPORT INFORMATION
  Report Type: 
  Country: None (occurrence: None)
  Receive Date: 20120420
  Receipt Date: 20120412
  Transmission Date: 20120825
  Serious: Yes (Other)
  Sender: FDA-Public Use
  Company Number: US-JNJFOC-20120406390

PATIENT
  Sex: Female
  Weight: 92.99 kg

DRUGS (3)
  1. ANTI-INFLAMMATORY [Concomitant]
     Indication: ARTHRALGIA
  2. XARELTO [Suspect]
     Indication: ATRIAL FIBRILLATION
     Route: 048
     Dates: start: 20120301
  3. BETA-BLOCKER, NOS [Suspect]
     Indication: ILL-DEFINED DISORDER

REACTIONS (3)
  - BLOOD PRESSURE DECREASED [None]
  - BLOOD IRON DECREASED [None]
  - HEART RATE DECREASED [None]
